FAERS Safety Report 9790804 (Version 1)
Quarter: 2013Q4

REPORT INFORMATION
  Report Type: Spontaneous
  Country: US (occurrence: US)
  Receive Date: 20131231
  Receipt Date: 20131231
  Transmission Date: 20140711
  Serious: No
  Sender: FDA-Public Use
  Company Number: US-ASTRAZENECA-2013SE55147

PATIENT
  Age: 62 Year
  Sex: Female
  Weight: 95.3 kg

DRUGS (3)
  1. PULMICORT FLEXHALER [Suspect]
     Indication: ASTHMA
     Route: 055
  2. ZARFIRLUKAST [Suspect]
     Indication: ASTHMA
     Route: 048
  3. PRO AIR [Concomitant]

REACTIONS (2)
  - Asthma [Unknown]
  - Circumstance or information capable of leading to medication error [Unknown]
